FAERS Safety Report 5318527-7 (Version None)
Quarter: 2007Q2

REPORT INFORMATION
  Report Type: 
  Country: None (occurrence: None)
  Receive Date: 20070501
  Receipt Date: 20070423
  Transmission Date: 20071010
  Serious: No
  Sender: FDA-Public Use
  Company Number: TAP2007Q00542

PATIENT
  Age: 3 Month
  Sex: Female
  Weight: 9.1 kg

DRUGS (2)
  1. PREVACID [Suspect]
     Indication: GASTROOESOPHAGEAL REFLUX DISEASE
     Dosage: 7.5 MG, 2 IN 1 D, PER ORAL
     Route: 048
     Dates: start: 20061101, end: 20070201
  2. ZANTAC [Concomitant]

REACTIONS (7)
  - CONGENITAL ANOMALY [None]
  - DRUG EXPOSURE DURING PREGNANCY [None]
  - HYPOKINESIA [None]
  - NYSTAGMUS [None]
  - VISION BLURRED [None]
  - VISUAL DISTURBANCE [None]
  - VISUAL TRACKING TEST ABNORMAL [None]
